FAERS Safety Report 9441526 (Version 2)
Quarter: 2013Q3

REPORT INFORMATION
  Report Type: Spontaneous
  Country: US (occurrence: US)
  Receive Date: 20130805
  Receipt Date: 20130912
  Transmission Date: 20140515
  Serious: Yes (Other)
  Sender: FDA-Public Use
  Company Number: US-RB-056811-13

PATIENT
  Age: 30 Year
  Sex: Male

DRUGS (6)
  1. SUBOXONE FILM [Suspect]
     Dosage: SUBOXONE FILM
     Route: 060
     Dates: end: 2011
  2. SUBOXONE FILM [Suspect]
     Dosage: SUBOXONE FILM
     Route: 060
     Dates: start: 2011, end: 2012
  3. SUBOXONE FILM [Suspect]
     Dosage: SUBOXONE FILM; 1-2 MG TWICE A DAY
     Route: 060
     Dates: start: 2012, end: 201306
  4. SUBOXONE FILM [Suspect]
     Dosage: SUBOXONE FILM; VARIOUS DOSES - TAKING PIECES OF FILM AS NEEDED IF SYMPTOMS GOT TOO BAD
     Route: 060
     Dates: start: 201306
  5. SUBOXONE FILM [Suspect]
     Indication: DRUG DEPENDENCE
     Dosage: SUBOXONE FILM-TAKING 1/4 OF AN 8 MG STRIP
     Route: 065
  6. SEROQUEL [Concomitant]
     Indication: BIPOLAR DISORDER
     Dosage: DOSING DETAILS UNKNOWN
     Route: 065
     Dates: start: 201307

REACTIONS (11)
  - Wrong technique in drug usage process [Not Recovered/Not Resolved]
  - Suicidal ideation [Recovered/Resolved]
  - Bipolar I disorder [Recovered/Resolved]
  - Condition aggravated [Recovered/Resolved]
  - Underdose [Not Recovered/Not Resolved]
  - Insomnia [Recovered/Resolved]
  - Tremor [Recovered/Resolved]
  - Pain in extremity [Recovered/Resolved]
  - Affect lability [Recovered/Resolved]
  - Drug dependence [Recovered/Resolved]
  - Chills [Recovered/Resolved]
